FAERS Safety Report 7465887-7 (Version None)
Quarter: 2011Q2

REPORT INFORMATION
  Report Type: 
  Country: None (occurrence: None)
  Receive Date: 20110509
  Receipt Date: 20100414
  Transmission Date: 20111010
  Serious: No
  Sender: FDA-Public Use
  Company Number: US-ALEXION-A201000425

PATIENT
  Sex: Male

DRUGS (8)
  1. VITAMIN A [Concomitant]
     Dosage: 50000 IU, Q WEEK
     Route: 048
  2. IRON [Concomitant]
     Dosage: 1, QD
     Route: 048
  3. SOLIRIS [Suspect]
     Indication: PAROXYSMAL NOCTURNAL HAEMOGLOBINURIA
     Dosage: 900 MG, UNK
     Route: 042
  4. PREDNISONE [Concomitant]
     Indication: PAROXYSMAL NOCTURNAL HAEMOGLOBINURIA
     Dosage: 10 MG, QD
     Route: 048
  5. PRILOSEC [Concomitant]
     Dosage: 40 MG, QD
     Route: 048
  6. RESTORIL                           /00393701/ [Concomitant]
     Indication: SLEEP DISORDER
     Dosage: 30 MG, QD (QHS)
     Route: 048
  7. HUMALOG [Concomitant]
     Indication: DIABETES MELLITUS
     Dosage: UNK
     Route: 058
  8. LANTUS [Concomitant]
     Indication: DIABETES MELLITUS
     Dosage: 44 IU, QD (BEFORE BREAKFAST)
     Route: 058

REACTIONS (1)
  - FEELING ABNORMAL [None]
